FAERS Safety Report 6339620-6 (Version None)
Quarter: 2009Q3

REPORT INFORMATION
  Report Type: 
  Country: None (occurrence: None)
  Receive Date: 20090903
  Receipt Date: 20090825
  Transmission Date: 20100115
  Serious: Yes (Hospitalization)
  Sender: FDA-Public Use
  Company Number: FR-MERCK-0908FRA00044

PATIENT
  Age: 66 Year
  Sex: Female

DRUGS (2)
  1. JANUVIA [Suspect]
     Indication: DIABETES MELLITUS
     Route: 048
     Dates: start: 20090101, end: 20090601
  2. METFORMIN PAMOATE [Concomitant]
     Indication: DIABETES MELLITUS
     Route: 065

REACTIONS (1)
  - PARAESTHESIA [None]
